FAERS Safety Report 6144355-9 (Version None)
Quarter: 2009Q2

REPORT INFORMATION
  Report Type: 
  Country: None (occurrence: None)
  Receive Date: 20090406
  Receipt Date: 20090327
  Transmission Date: 20091009
  Serious: Yes (Death, Other)
  Sender: FDA-Public Use
  Company Number: GB-PFIZER INC-2008155659

PATIENT

DRUGS (15)
  1. DOXORUBICIN HCL [Suspect]
     Indication: NON-HODGKIN'S LYMPHOMA
     Dosage: UNK
     Dates: start: 20071219, end: 20080518
  2. CYCLOPHOSPHAMIDE [Suspect]
     Indication: NON-HODGKIN'S LYMPHOMA
     Dosage: UNK
     Dates: start: 20071219, end: 20080518
  3. METHOTREXATE SODIUM [Suspect]
     Indication: NON-HODGKIN'S LYMPHOMA
     Dosage: 12.5 MG, 3X/DAY, EVERY DAY
     Route: 039
     Dates: start: 20080314, end: 20080518
  4. PREDNISONE [Suspect]
     Indication: NON-HODGKIN'S LYMPHOMA
     Dosage: UNK
     Dates: start: 20071219, end: 20080518
  5. VINCRISTINE SULFATE [Suspect]
     Indication: NON-HODGKIN'S LYMPHOMA
     Dosage: UNK
     Dates: start: 20071219, end: 20080518
  6. VINCRISTINE SULFATE [Suspect]
     Indication: DIFFUSE LARGE B-CELL LYMPHOMA
  7. RITUXIMAB [Suspect]
     Indication: NON-HODGKIN'S LYMPHOMA
     Dosage: UNK
     Dates: start: 20080301, end: 20081201
  8. AMLODIPINE [Concomitant]
  9. FLUCONAZOLE [Concomitant]
  10. FOLINIC ACID [Concomitant]
  11. GANCICLOVIR [Concomitant]
  12. LANSOPRAZOLE [Concomitant]
  13. SIMVASTATIN [Concomitant]
  14. SULFAMETHOXAZOLE [Concomitant]
  15. TRIMETHOPRIM [Concomitant]

REACTIONS (4)
  - AMNESIA [None]
  - APRAXIA [None]
  - ATAXIA [None]
  - LEUKOENCEPHALOPATHY [None]
